FAERS Safety Report 7562360-2 (Version None)
Quarter: 2011Q2

REPORT INFORMATION
  Report Type: 
  Country: None (occurrence: None)
  Receive Date: 20110620
  Receipt Date: 20110620
  Transmission Date: 20111010
  Serious: Yes (Hospitalization)
  Sender: FDA-Public Use
  Company Number: None

PATIENT
  Age: 83 Year
  Sex: Male
  Weight: 105.5 kg

DRUGS (1)
  1. GLIPIZIDE [Suspect]
     Indication: DIABETES MELLITUS
     Dosage: 5MG EVERY DAY PO
     Route: 048
     Dates: start: 20071031

REACTIONS (5)
  - HYPOGLYCAEMIA [None]
  - ABASIA [None]
  - PROSTATE CANCER METASTATIC [None]
  - INCORRECT DOSE ADMINISTERED [None]
  - ARTHRALGIA [None]
